FAERS Safety Report 12783453 (Version 1)
Quarter: 2016Q3

REPORT INFORMATION
  Report Type: Spontaneous
  Country: US (occurrence: US)
  Receive Date: 20160927
  Receipt Date: 20160927
  Transmission Date: 20161109
  Serious: No
  Sender: FDA-Public Use
  Company Number: None

PATIENT
  Age: 71 Year
  Sex: Male
  Weight: 85.5 kg

DRUGS (6)
  1. ATORVASTATIN [Suspect]
     Active Substance: ATORVASTATIN
     Indication: BLOOD CHOLESTEROL INCREASED
     Route: 048
     Dates: start: 20000101, end: 20160701
  2. VITAMIN D [Concomitant]
     Active Substance: CHOLECALCIFEROL
  3. ASPIRIN. [Concomitant]
     Active Substance: ASPIRIN
  4. LISINOPRIL. [Concomitant]
     Active Substance: LISINOPRIL
  5. WARFARIN [Concomitant]
     Active Substance: WARFARIN
  6. SOTOLOL [Concomitant]
     Active Substance: SOTALOL

REACTIONS (6)
  - Asthenia [None]
  - Muscle spasms [None]
  - Musculoskeletal pain [None]
  - Arthralgia [None]
  - Myalgia [None]
  - Groin pain [None]

NARRATIVE: CASE EVENT DATE: 20160701
